FAERS Safety Report 4836529-1 (Version None)
Quarter: 2005Q4

REPORT INFORMATION
  Report Type: 
  Country: None (occurrence: None)
  Receive Date: 20051118
  Receipt Date: 20051102
  Transmission Date: 20060501
  Serious: Yes (Hospitalization)
  Sender: FDA-Public Use
  Company Number: DSA_27377_2005

PATIENT
  Age: 16 Year
  Sex: Female

DRUGS (1)
  1. DILTIAZEM HCL [Suspect]
     Dosage: 12000 MG ONCE PO
     Route: 048
     Dates: start: 19980309, end: 19980309

REACTIONS (23)
  - ANURIA [None]
  - BRADYCARDIA [None]
  - CALCIUM IONISED DECREASED [None]
  - CARDIAC ARREST [None]
  - COAGULOPATHY [None]
  - DIZZINESS [None]
  - DRUG TOXICITY [None]
  - ELECTROLYTE IMBALANCE [None]
  - HAEMODIALYSIS [None]
  - HYPERGLYCAEMIA [None]
  - HYPERLACTACIDAEMIA [None]
  - HYPOTENSION [None]
  - HYPOXIA [None]
  - INTENTIONAL OVERDOSE [None]
  - MEDIASTINAL HAEMORRHAGE [None]
  - NAUSEA [None]
  - NO THERAPEUTIC RESPONSE [None]
  - NODAL ARRHYTHMIA [None]
  - NODAL RHYTHM [None]
  - PULMONARY OEDEMA [None]
  - PUPIL FIXED [None]
  - RENAL FAILURE [None]
  - VASODILATATION [None]
